FAERS Safety Report 8827335 (Version 1)
Quarter: 2012Q4

REPORT INFORMATION
  Report Type: 
  Country: US (occurrence: US)
  Receive Date: 20121005
  Receipt Date: 20121005
  Transmission Date: 20130627
  Serious: Yes (Hospitalization)
  Sender: FDA-Public Use
  Company Number: US-ASTRAZENECA-2012SE75008

PATIENT
  Age: 81 Year
  Sex: Male
  Weight: 144 kg

DRUGS (4)
  1. BRILINTA [Suspect]
     Indication: ANGINA UNSTABLE
     Route: 048
  2. BRILINTA [Suspect]
     Indication: ACUTE MYOCARDIAL INFARCTION
     Route: 048
  3. BRILINTA [Suspect]
     Indication: ANGINA UNSTABLE
     Route: 048
  4. BRILINTA [Suspect]
     Indication: ACUTE MYOCARDIAL INFARCTION
     Route: 048

REACTIONS (1)
  - Embolic stroke [Unknown]
